FAERS Safety Report 5333492-4 (Version None)
Quarter: 2007Q1

REPORT INFORMATION
  Report Type: 
  Country: None (occurrence: None)
  Receive Date: 20070308
  Receipt Date: 20061120
  Transmission Date: 20070707
  Serious: No
  Sender: FDA-Public Use
  Company Number: 2006-BP-13560BP

PATIENT
  Age: 72 Year
  Sex: Male

DRUGS (2)
  1. SPIRIVA [Suspect]
     Indication: CHRONIC OBSTRUCTIVE PULMONARY DISEASE
     Dosage: 18 MCG (18 MCG ,1 IN 1 D), IH
     Route: 055
     Dates: start: 20061108, end: 20061119
  2. ADVAIR DISKUS 100/50 [Concomitant]

REACTIONS (1)
  - HAEMOPTYSIS [None]
